FAERS Safety Report 22111680 (Version 2)
Quarter: 2023Q2

REPORT INFORMATION
  Report Type: Other
  Country: NL (occurrence: NL)
  Receive Date: 20230318
  Receipt Date: 20230627
  Transmission Date: 20230722
  Serious: Yes (Hospitalization, Other)
  Sender: FDA-Public Use
  Company Number: NL-CELLTRION INC.-2023NL005673

PATIENT

DRUGS (5)
  1. BEVACIZUMAB [Suspect]
     Active Substance: BEVACIZUMAB
     Indication: Colorectal cancer metastatic
     Dosage: 7.5 MG/KG (BODY WEIGHT)
     Route: 042
     Dates: start: 20221005, end: 20221208
  2. BEVACIZUMAB [Suspect]
     Active Substance: BEVACIZUMAB
     Dosage: UNK
     Dates: start: 20221005, end: 20221205
  3. OXALIPLATIN [Suspect]
     Active Substance: OXALIPLATIN
     Indication: Colorectal cancer metastatic
     Dosage: 130 MG/M2 (BODY SURFACE AREA (BSA))
     Route: 042
     Dates: start: 20221005, end: 20221208
  4. OXALIPLATIN [Suspect]
     Active Substance: OXALIPLATIN
     Dosage: UNK
     Dates: start: 20221005, end: 20221205
  5. CAPECITABINE [Suspect]
     Active Substance: CAPECITABINE
     Indication: Colorectal cancer metastatic
     Dosage: 1000 MG/M2, BID (BODY-SURFACE AREA)
     Route: 048
     Dates: start: 20221005, end: 20221222

REACTIONS (5)
  - Malaise [Recovered/Resolved]
  - Stomal hernia [Not Recovered/Not Resolved]
  - Angina pectoris [Recovered/Resolved]
  - Dehydration [Recovered/Resolved]
  - Wound infection [Recovered/Resolved]

NARRATIVE: CASE EVENT DATE: 20230205
